FAERS Safety Report 18755140 (Version 2)
Quarter: 2022Q3

REPORT INFORMATION
  Report Type: Spontaneous
  Country: IN (occurrence: IN)
  Receive Date: 20210119
  Receipt Date: 20220924
  Transmission Date: 20221026
  Serious: Yes (Other)
  Sender: FDA-Public Use
  Company Number: IN-NOVARTISPH-PHHY2013IN005765

PATIENT
  Sex: Male

DRUGS (2)
  1. GLIVEC [Suspect]
     Active Substance: IMATINIB MESYLATE
     Indication: Chronic myeloid leukaemia
     Dosage: 600 MG (1 X 400 MG + 2 X 100 MG TABLETS)
     Route: 065
  2. GLIVEC [Suspect]
     Active Substance: IMATINIB MESYLATE
     Dosage: 400 MG (1 X 400MG)
     Route: 065

REACTIONS (3)
  - Chronic kidney disease [Unknown]
  - Blood creatinine increased [Unknown]
  - Therapy non-responder [Unknown]
